FAERS Safety Report 9352326 (Version 1)
Quarter: 2013Q2

REPORT INFORMATION
  Report Type: Spontaneous
  Country: US (occurrence: US)
  Receive Date: 20130617
  Receipt Date: 20130617
  Transmission Date: 20140414
  Serious: No
  Sender: FDA-Public Use
  Company Number: US-PFIZER INC-2013178578

PATIENT
  Age: 70 Year
  Sex: Female
  Weight: 87.98 kg

DRUGS (1)
  1. ADVIL [Suspect]
     Indication: ARTHRALGIA
     Dosage: UNK, AS NEEDED

REACTIONS (2)
  - Expired drug administered [Unknown]
  - Weight decreased [Unknown]
